FAERS Safety Report 6962532-1 (Version None)
Quarter: 2010Q3

REPORT INFORMATION
  Report Type: 
  Country: None (occurrence: None)
  Receive Date: 20100902
  Receipt Date: 20100602
  Transmission Date: 20110219
  Serious: Yes (Hospitalization)
  Sender: FDA-Public Use
  Company Number: SE-SANOFI-AVENTIS-2010SA031741

PATIENT
  Age: 68 Year
  Sex: Female

DRUGS (9)
  1. MULTAQ [Suspect]
     Indication: ATRIAL FIBRILLATION
     Route: 048
     Dates: start: 20100601
  2. MULTAQ [Suspect]
     Route: 048
  3. BISOPROLOL FUMARATE [Concomitant]
     Indication: PRODUCT USED FOR UNKNOWN INDICATION
  4. RAMIPRIL [Concomitant]
     Indication: PRODUCT USED FOR UNKNOWN INDICATION
  5. SIMVASTATIN [Concomitant]
     Indication: PRODUCT USED FOR UNKNOWN INDICATION
  6. ASPIRIN [Concomitant]
     Indication: PRODUCT USED FOR UNKNOWN INDICATION
  7. WARAN [Concomitant]
     Indication: PRODUCT USED FOR UNKNOWN INDICATION
  8. IMDUR [Concomitant]
     Indication: PRODUCT USED FOR UNKNOWN INDICATION
  9. PROSCAR [Concomitant]
     Indication: PRODUCT USED FOR UNKNOWN INDICATION

REACTIONS (3)
  - ATRIAL FIBRILLATION [None]
  - SENSATION OF HEAVINESS [None]
  - SYNCOPE [None]
